FAERS Safety Report 21820936 (Version 1)
Quarter: 2023Q1

REPORT INFORMATION
  Report Type: Spontaneous
  Country: FR (occurrence: FR)
  Receive Date: 20230105
  Receipt Date: 20230105
  Transmission Date: 20230418
  Serious: Yes (Other)
  Sender: FDA-Public Use
  Company Number: None

PATIENT
  Age: 54 Year
  Sex: Female

DRUGS (1)
  1. KETOPROFEN [Suspect]
     Active Substance: KETOPROFEN
     Indication: Pain
     Dosage: UNSPECIFIED
     Route: 065
     Dates: start: 202209, end: 202209

REACTIONS (1)
  - Vascular pain [Recovered/Resolved]

NARRATIVE: CASE EVENT DATE: 20220913
